FAERS Safety Report 4807826-0 (Version None)
Quarter: 2005Q4

REPORT INFORMATION
  Report Type: 
  Country: None (occurrence: None)
  Receive Date: 20051020
  Receipt Date: 20051011
  Transmission Date: 20060501
  Serious: Yes (Other)
  Sender: FDA-Public Use
  Company Number: 2005141760

PATIENT
  Sex: Female

DRUGS (1)
  1. ZARONTIN [Suspect]
     Indication: ILL-DEFINED DISORDER
     Dosage: (250 MG), ORAL
     Route: 048

REACTIONS (2)
  - CONVULSION [None]
  - TREATMENT NONCOMPLIANCE [None]
